FAERS Safety Report 9653963 (Version 1)
Quarter: 2013Q4

REPORT INFORMATION
  Report Type: Spontaneous
  Country: US (occurrence: None)
  Receive Date: 20131028
  Receipt Date: 20131028
  Transmission Date: 20140711
  Serious: Yes (Death)
  Sender: FDA-Public Use
  Company Number: 1713747-2013-99966

PATIENT
  Age: 65 Year
  Sex: Male

DRUGS (1)
  1. 2.5% DEXTROSE PD [Suspect]

REACTIONS (1)
  - Device occlusion [None]
